FAERS Safety Report 7404937-0 (Version None)
Quarter: 2011Q1

REPORT INFORMATION
  Report Type: 
  Country: None (occurrence: None)
  Receive Date: 20110331
  Receipt Date: 20110328
  Transmission Date: 20110831
  Serious: Yes (Other)
  Sender: FDA-Public Use
  Company Number: A0920252A

PATIENT
  Age: 34 Year
  Sex: Male

DRUGS (1)
  1. UREA PEROXIDE [Suspect]

REACTIONS (4)
  - DEAFNESS UNILATERAL [None]
  - EAR INFECTION [None]
  - EAR PAIN [None]
  - EAR DISCOMFORT [None]
